FAERS Safety Report 9789432 (Version 1)
Quarter: 2013Q4

REPORT INFORMATION
  Report Type: Spontaneous
  Country: GB (occurrence: GB)
  Receive Date: 20131231
  Receipt Date: 20131231
  Transmission Date: 20140711
  Serious: Yes (Other)
  Sender: FDA-Public Use
  Company Number: GB-ORION CORPORATION ORION PHARMA-ENT 2013-0220

PATIENT
  Age: 73 Year
  Sex: Male
  Weight: 101 kg

DRUGS (5)
  1. COMTESS [Suspect]
     Indication: PARKINSON^S DISEASE
     Route: 048
     Dates: start: 20131029, end: 20131128
  2. FUROSEMIDE [Concomitant]
     Route: 065
  3. MADOPAR [Concomitant]
     Route: 065
  4. PRAMIPEXOLE [Concomitant]
     Route: 065
  5. RAMIPRIL [Concomitant]
     Route: 065

REACTIONS (1)
  - Musculoskeletal stiffness [Recovered/Resolved]
